FAERS Safety Report 9354082 (Version 2)
Quarter: 2013Q2

REPORT INFORMATION
  Report Type: Spontaneous
  Country: FR (occurrence: FR)
  Receive Date: 20130618
  Receipt Date: 20130626
  Transmission Date: 20140414
  Serious: Yes (Death, Other)
  Sender: FDA-Public Use
  Company Number: FR-TEVA-412973ISR

PATIENT
  Age: 83 Year
  Sex: Female

DRUGS (12)
  1. FUROSEMIDE TEVA 40MG [Suspect]
     Dates: start: 20130506
  2. ACUPAN [Concomitant]
  3. BURINEX [Concomitant]
  4. ZOPICLONE (UNKNOWN BRAND) [Concomitant]
  5. PARACETAMOL (UNKNOWN BRAND) [Concomitant]
  6. PANTOPRAZOLE (UNKNOWN BRAND) [Concomitant]
  7. PREDNISOLONE (UNKNOWN BRAND) [Concomitant]
  8. CANDESARTAN (UNKNOWN BRAND) [Concomitant]
  9. ALPRAZOLAM TEVA [Concomitant]
  10. NEBIVOLOL TEVA [Concomitant]
  11. FENTANYL (UNKNOWN BRAND) [Concomitant]
  12. OXYNORM [Concomitant]

REACTIONS (3)
  - Coma [Fatal]
  - Chest pain [Unknown]
  - Local swelling [Unknown]
